FAERS Safety Report 6160488-5 (Version None)
Quarter: 2009Q2

REPORT INFORMATION
  Report Type: 
  Country: None (occurrence: None)
  Receive Date: 20090416
  Receipt Date: 20090403
  Transmission Date: 20091009
  Serious: Yes (Other)
  Sender: FDA-Public Use
  Company Number: 2009002863

PATIENT
  Age: 58 Year
  Sex: Male
  Weight: 83.0083 kg

DRUGS (4)
  1. FENTORA [Suspect]
     Indication: PAIN
     Dosage: 200 MCG (200 MCG, 1 IN 1 AS REQUIRED), BU
     Route: 002
     Dates: start: 20090121, end: 20090101
  2. LISINOPRIL [Concomitant]
  3. PERCOCET [Concomitant]
  4. OXYIR (OXYCODONE HYDROCHLORIDE) [Concomitant]

REACTIONS (3)
  - DRUG WITHDRAWAL SYNDROME [None]
  - INAPPROPRIATE SCHEDULE OF DRUG ADMINISTRATION [None]
  - TREATMENT NONCOMPLIANCE [None]
